FAERS Safety Report 15240108 (Version 1)
Quarter: 2018Q3

REPORT INFORMATION
  Report Type: Spontaneous
  Country: GB (occurrence: GB)
  Receive Date: 20180803
  Receipt Date: 20180803
  Transmission Date: 20181010
  Serious: Yes (Other)
  Sender: FDA-Public Use
  Company Number: GB-TEVA-2018-GB-934184

PATIENT
  Age: 81 Year
  Sex: Female

DRUGS (2)
  1. TRIMETHOPRIM TABLETS BP 200 MG [Suspect]
     Active Substance: TRIMETHOPRIM
     Indication: URINARY TRACT INFECTION
     Dosage: ONE TABLET IN THE MORNING AND ONE IN THE NIGHT
     Route: 065
     Dates: end: 20180118
  2. ZOPICLONE [Concomitant]
     Active Substance: ZOPICLONE
     Indication: INSOMNIA
     Dosage: 3.75 MILLIGRAM DAILY; ONE TABLET IN THE NIGHT
     Route: 065
     Dates: start: 20180117

REACTIONS (7)
  - Feeling cold [Not Recovered/Not Resolved]
  - Suicidal ideation [Recovered/Resolved]
  - Chills [Not Recovered/Not Resolved]
  - Malaise [Not Recovered/Not Resolved]
  - Feeding disorder [Not Recovered/Not Resolved]
  - Nervousness [Not Recovered/Not Resolved]
  - Tremor [Not Recovered/Not Resolved]

NARRATIVE: CASE EVENT DATE: 20180117
